FAERS Safety Report 11196970 (Version 1)
Quarter: 2015Q2

REPORT INFORMATION
  Report Type: Spontaneous
  Country: SE (occurrence: SE)
  Receive Date: 20150617
  Receipt Date: 20150617
  Transmission Date: 20150821
  Serious: Yes (Hospitalization)
  Sender: FDA-Public Use
  Company Number: SE-PERRIGO-15SE005833

PATIENT
  Age: 28 Year
  Sex: Female

DRUGS (1)
  1. ACETAMINOPHEN 650MG ER 544 [Suspect]
     Active Substance: ACETAMINOPHEN
     Indication: INTENTIONAL OVERDOSE
     Dosage: APPROXIMATELY 195 G, SINGLE
     Route: 048

REACTIONS (8)
  - Toxicity to various agents [Recovered/Resolved]
  - International normalised ratio increased [Recovered/Resolved]
  - Aspartate aminotransferase increased [Recovered/Resolved]
  - Acidosis [Recovered/Resolved]
  - Bezoar [Recovered/Resolved]
  - Pancytopenia [Recovered/Resolved]
  - Alanine aminotransferase increased [Recovered/Resolved]
  - Depressed level of consciousness [Recovered/Resolved]
